FAERS Safety Report 16132311 (Version 1)
Quarter: 2019Q1

REPORT INFORMATION
  Report Type: Report from Study
  Country: FR (occurrence: FR)
  Receive Date: 20190329
  Receipt Date: 20190329
  Transmission Date: 20190418
  Serious: Yes (Death, Hospitalization, Disabling, Other)
  Sender: FDA-Public Use
  Company Number: FR-BRISTOL-MYERS SQUIBB COMPANY-BMS-2018-045620

PATIENT
  Age: 74 Year
  Sex: Female

DRUGS (1)
  1. NIVOLUMAB [Suspect]
     Active Substance: NIVOLUMAB
     Indication: RENAL CELL CARCINOMA
     Dosage: UNK
     Route: 065
     Dates: end: 20180625

REACTIONS (8)
  - Blood albumin decreased [Unknown]
  - Respiratory failure [Unknown]
  - Blood creatinine increased [Unknown]
  - Hypoproteinaemia [Unknown]
  - Death [Fatal]
  - Oedema peripheral [Not Recovered/Not Resolved]
  - Generalised oedema [Unknown]
  - Pleural effusion [Unknown]

NARRATIVE: CASE EVENT DATE: 20180514
